FAERS Safety Report 6547801-1 (Version None)
Quarter: 2010Q1

REPORT INFORMATION
  Report Type: 
  Country: None (occurrence: None)
  Receive Date: 20100124
  Receipt Date: 20091015
  Transmission Date: 20100710
  Serious: No
  Sender: FDA-Public Use
  Company Number: US-ALEXION-A200900847

PATIENT
  Sex: Female

DRUGS (9)
  1. SOLIRIS [Suspect]
     Indication: PAROXYSMAL NOCTURNAL HAEMOGLOBINURIA
     Dosage: 600 MG, UNK
     Route: 042
     Dates: start: 20070426, end: 20070524
  2. SOLIRIS [Suspect]
     Dosage: 900 MG, Q2WK
     Route: 042
     Dates: start: 20070606
  3. EXJADE [Concomitant]
     Dosage: UNK
     Route: 048
  4. ZANTAC                             /00550802/ [Concomitant]
     Dosage: UNK
     Route: 048
  5. TRAMADOL [Concomitant]
     Dosage: UNK
     Route: 048
  6. PERCOCET [Concomitant]
     Dosage: UNK
     Route: 048
  7. FOLIC ACID [Concomitant]
     Dosage: UNK
     Route: 048
  8. ZOMETA [Concomitant]
     Dosage: UNK, Q 6 MONTHS
     Route: 042
  9. LOVENOX [Concomitant]
     Dosage: 80 MG, QD
     Route: 058

REACTIONS (6)
  - DIARRHOEA [None]
  - FATIGUE [None]
  - INFLUENZA [None]
  - NAUSEA [None]
  - PAIN [None]
  - PYREXIA [None]
